FAERS Safety Report 8125721-9 (Version None)
Quarter: 2012Q1

REPORT INFORMATION
  Report Type: 
  Country: None (occurrence: None)
  Receive Date: 20120206
  Receipt Date: 20120126
  Transmission Date: 20120608
  Serious: Yes (Other)
  Sender: FDA-Public Use
  Company Number: DSA_54382_2012

PATIENT
  Age: 60 Year
  Sex: Female

DRUGS (3)
  1. WELLBUTRIN [Suspect]
     Indication: PRODUCT USED FOR UNKNOWN INDICATION
     Dosage: (300 MG QD)
  2. PROZAC [Concomitant]
  3. MIRTAZAPINE [Concomitant]

REACTIONS (4)
  - HEPATIC ENZYME INCREASED [None]
  - FEELING ABNORMAL [None]
  - DRY MOUTH [None]
  - FATIGUE [None]
